FAERS Safety Report 5517826-3 (Version None)
Quarter: 2007Q4

REPORT INFORMATION
  Report Type: 
  Country: None (occurrence: None)
  Receive Date: 20071113
  Receipt Date: 20071107
  Transmission Date: 20080405
  Serious: Yes (Life-Threatening, Hospitalization)
  Sender: FDA-Public Use
  Company Number: CLOF-10700

PATIENT
  Age: 14 Year
  Sex: Male
  Weight: 92 kg

DRUGS (41)
  1. CLOFARABINE. MFR: GENZYME [Suspect]
     Indication: ACUTE LYMPHOCYTIC LEUKAEMIA
     Dosage: 40 MG/M2 IV
     Route: 042
     Dates: start: 20071001, end: 20071006
  2. CYTARABINE [Suspect]
     Indication: ACUTE LYMPHOCYTIC LEUKAEMIA
     Dosage: 1000 MG/M2 QD X 5 IV
     Route: 042
     Dates: start: 20071001, end: 20071005
  3. ACETAMINOPHEN [Concomitant]
  4. ACYCLOVIR [Concomitant]
  5. ALLOPURINOL [Concomitant]
  6. AMPHOTERICIN B [Concomitant]
  7. BACITRACIN [Concomitant]
  8. CLINDAMYCIN HCL [Concomitant]
  9. DAPSONE [Concomitant]
  10. DIPHENHYDRAMINE HCL [Concomitant]
  11. DOCUSATE [Concomitant]
  12. NEUPOGEN [Concomitant]
  13. FLUCONAZOLE [Concomitant]
  14. GENTAMICIN [Concomitant]
  15. HEPARIN [Concomitant]
  16. HYDROXYUREA [Concomitant]
  17. IMMUNE GLOBULIN (HUMAN) [Concomitant]
  18. LOVERSOL [Concomitant]
  19. ISRADIPINE [Concomitant]
  20. POTASSIUM CHLORIDE [Concomitant]
  21. LANSOPRAZOLE [Concomitant]
  22. LIDOCAINE [Concomitant]
  23. LOPERAMIDE HCL [Concomitant]
  24. LORAZEPAM [Concomitant]
  25. MAGNESIUM SULFATE [Concomitant]
  26. MEPERIDINE HCL [Concomitant]
  27. MEROPENEM [Concomitant]
  28. METHYLPREDNISOLONE [Concomitant]
  29. METOCLOPRAMIDE [Concomitant]
  30. METRONIDAZOLE [Concomitant]
  31. MORPHINE [Concomitant]
  32. MULTI-VITAMIN [Concomitant]
  33. ONDANSETRON [Concomitant]
  34. PANTOPRAZOLE SODIUM [Concomitant]
  35. PYRIDOXINE [Concomitant]
  36. RANITIDINE HCL [Concomitant]
  37. SODIUM BICARBONATE [Concomitant]
  38. SULFAMETHOXAZOLE [Concomitant]
  39. VANCOMYCIN [Concomitant]
  40. VORICONAZOLE [Concomitant]
  41. ZOLPIDEM TARTRATE [Concomitant]

REACTIONS (11)
  - ANXIETY [None]
  - CONFUSIONAL STATE [None]
  - DIARRHOEA [None]
  - DISORIENTATION [None]
  - HYPERTENSION [None]
  - HYPOTENSION [None]
  - NEUROPATHY [None]
  - NEUTROPENIC INFECTION [None]
  - PANCREATITIS [None]
  - PANCYTOPENIA [None]
  - STAPHYLOCOCCAL BACTERAEMIA [None]
